FAERS Safety Report 5984040-7 (Version None)
Quarter: 2008Q4

REPORT INFORMATION
  Report Type: 
  Country: None (occurrence: None)
  Receive Date: 20081208
  Receipt Date: 20081128
  Transmission Date: 20090506
  Serious: Yes (Life-Threatening, Hospitalization)
  Sender: FDA-Public Use
  Company Number: NL-JNJFOC-20081200186

PATIENT
  Sex: Male

DRUGS (3)
  1. BLINDED; INFLIXIMAB, RECOMBINANT [Suspect]
     Indication: RHEUMATOID ARTHRITIS
  2. FOLIC ACID [Concomitant]
  3. METHOTREXATE [Concomitant]

REACTIONS (3)
  - OESOPHAGEAL CARCINOMA [None]
  - PNEUMONIA [None]
  - PNEUMOTHORAX [None]
